FAERS Safety Report 9170218 (Version 1)
Quarter: 2013Q1

REPORT INFORMATION
  Report Type: Spontaneous
  Country: US (occurrence: US)
  Receive Date: 20130319
  Receipt Date: 20130319
  Transmission Date: 20140127
  Serious: No
  Sender: FDA-Public Use
  Company Number: PHEH2013US006199

PATIENT
  Sex: Male

DRUGS (12)
  1. TASIGNA [Suspect]
     Indication: CHRONIC MYELOID LEUKAEMIA
  2. FLOMAX [Suspect]
     Dosage: UNK UKN, UNK
     Dates: start: 201207
  3. FLOMAX [Suspect]
     Dosage: UNK UKN, UNK
  4. RAPAFLO [Suspect]
  5. VITAMIIN C [Concomitant]
  6. SAW PALMETTO [Concomitant]
  7. MOVE FREE [Concomitant]
  8. MAGNESIUM [Concomitant]
  9. LUTEIN [Concomitant]
  10. MSM [Concomitant]
  11. OMEPRAZOLE [Concomitant]
  12. ACIDOPHILUS [Concomitant]

REACTIONS (2)
  - Headache [Not Recovered/Not Resolved]
  - Palpitations [Recovering/Resolving]
